FAERS Safety Report 6638619-X (Version None)
Quarter: 2010Q1

REPORT INFORMATION
  Report Type: 
  Country: None (occurrence: None)
  Receive Date: 20100317
  Receipt Date: 20100311
  Transmission Date: 20100710
  Serious: Yes (Death)
  Sender: FDA-Public Use
  Company Number: JP-ELI_LILLY_AND_COMPANY-JP201003004270

PATIENT
  Age: 56 Year
  Sex: Male

DRUGS (7)
  1. HUMULIN R [Suspect]
     Dosage: 30-50 IU
     Route: 065
  2. ELEMENMIC [Concomitant]
  3. ELENTAL [Concomitant]
  4. GLUCOSE [Concomitant]
  5. KIDMIN [Concomitant]
  6. SEISHOKU [Concomitant]
  7. OTSUKA MV                               /JPN/ [Concomitant]

REACTIONS (2)
  - DEATH [None]
  - HYPOPHOSPHATAEMIA [None]
